FAERS Safety Report 7125546-7 (Version None)
Quarter: 2010Q4

REPORT INFORMATION
  Report Type: 
  Country: None (occurrence: None)
  Receive Date: 20101115
  Receipt Date: 20101109
  Transmission Date: 20110411
  Serious: Yes (Hospitalization)
  Sender: FDA-Public Use
  Company Number: SP03239

PATIENT
  Age: 44 Year
  Sex: Female

DRUGS (1)
  1. BALSALAZIDE DISODIUM [Suspect]

REACTIONS (4)
  - EOSINOPHILIC PNEUMONIA [None]
  - HAEMOTHORAX [None]
  - NIGHT SWEATS [None]
  - WEIGHT DECREASED [None]
